FAERS Safety Report 6530593-X (Version None)
Quarter: 2010Q1

REPORT INFORMATION
  Report Type: 
  Country: None (occurrence: None)
  Receive Date: 20100108
  Receipt Date: 20091230
  Transmission Date: 20100710
  Serious: Yes (Other)
  Sender: FDA-Public Use
  Company Number: GB-RANBAXY-2009RR-30275

PATIENT
  Age: 68 Year
  Sex: Female
  Weight: 122 kg

DRUGS (10)
  1. RAMIPRIL [Suspect]
     Indication: HYPERTENSION
     Dosage: 1.25 MG, QD
     Route: 048
     Dates: start: 20090820, end: 20090822
  2. BYETTA [Suspect]
     Indication: DIABETES MELLITUS
     Dosage: 10 UG, BID
     Route: 058
     Dates: start: 20090201
  3. ALLOPURINOL [Concomitant]
     Indication: GOUT
     Dosage: 300 MG, QD
     Route: 048
     Dates: start: 20090722
  4. COLCHICINE [Concomitant]
     Indication: GOUT
     Dosage: 500 UG, BID
     Route: 048
     Dates: start: 20090723, end: 20090820
  5. FUROSEMIDE [Concomitant]
     Indication: RENAL FAILURE CHRONIC
     Dosage: 80 MG, QD
     Route: 048
     Dates: start: 20040101
  6. FUROSEMIDE [Concomitant]
     Indication: DIABETES MELLITUS
  7. FUROSEMIDE [Concomitant]
     Indication: HYPERTENSION
  8. FUROSEMIDE [Concomitant]
     Indication: RETROPERITONEAL FIBROSIS
  9. PARACETAMOL [Concomitant]
     Dosage: UNK
     Route: 048
  10. PERINDOPRIL ERBUMINE [Concomitant]
     Dosage: 2 MG, UNK
     Dates: start: 20090729, end: 20090729

REACTIONS (4)
  - DERMATITIS ALLERGIC [None]
  - PRURITUS [None]
  - SKIN SWELLING [None]
  - URTICARIA [None]
